FAERS Safety Report 17920875 (Version 2)
Quarter: 2024Q1

REPORT INFORMATION
  Report Type: Spontaneous
  Country: GB (occurrence: GB)
  Receive Date: 20200622
  Receipt Date: 20240208
  Transmission Date: 20240409
  Serious: Yes (Death, Hospitalization)
  Sender: FDA-Public Use
  Company Number: GB-MHRA-EYC 00223010

PATIENT
  Age: 51 Year
  Sex: Female

DRUGS (5)
  1. AMOXICILLIN [Suspect]
     Active Substance: AMOXICILLIN
     Indication: Lower respiratory tract infection
     Dosage: 1500 MILLIGRAM, ONCE A DAY (FOR 5 DAYS)
     Route: 065
  2. WARFARIN [Suspect]
     Active Substance: WARFARIN
     Indication: Mitral valve replacement
     Dosage: 6-7MG
     Route: 048
     Dates: start: 19930909, end: 20200404
  3. BISOPROLOL FUMARATE [Concomitant]
     Active Substance: BISOPROLOL FUMARATE
     Indication: Product used for unknown indication
     Dosage: 5 MILLIGRAM, ONCE A DAY
     Route: 048
  4. RAMIPRIL [Concomitant]
     Active Substance: RAMIPRIL
     Indication: Product used for unknown indication
     Dosage: 10 MILLIGRAM, ONCE A DAY
     Route: 048
  5. SIMVASTATIN [Concomitant]
     Active Substance: SIMVASTATIN
     Indication: Product used for unknown indication
     Dosage: 40 MILLIGRAM, ONCE A DAY
     Route: 048

REACTIONS (2)
  - Haemorrhage intracranial [Fatal]
  - International normalised ratio increased [Unknown]
